FAERS Safety Report 6830066-0 (Version None)
Quarter: 2010Q3

REPORT INFORMATION
  Report Type: 
  Country: None (occurrence: None)
  Receive Date: 20100711
  Receipt Date: 20100510
  Transmission Date: 20110219
  Serious: No
  Sender: FDA-Public Use
  Company Number: US-ALLERGAN-1006149US

PATIENT
  Age: 46 Year
  Sex: Female

DRUGS (4)
  1. LATISSE [Suspect]
     Indication: GROWTH OF EYELASHES
     Dosage: 1 GTT, QHS
     Route: 061
     Dates: start: 20090501, end: 20100401
  2. SYNTHROID [Concomitant]
     Indication: HYPOTHYROIDISM
  3. NEXIUM [Concomitant]
     Indication: GASTROOESOPHAGEAL REFLUX DISEASE
  4. BIRTH CONTROL PILL [Concomitant]

REACTIONS (1)
  - IRIS DISORDER [None]
